FAERS Safety Report 8032793-9 (Version None)
Quarter: 2012Q1

REPORT INFORMATION
  Report Type: 
  Country: None (occurrence: None)
  Receive Date: 20120110
  Receipt Date: 20120107
  Transmission Date: 20120608
  Serious: Yes (Other)
  Sender: FDA-Public Use
  Company Number: US-PFIZER INC-2012005020

PATIENT
  Sex: Female

DRUGS (1)
  1. IBUPROFEN (ADVIL) [Suspect]
     Indication: PAIN
     Dosage: UNK

REACTIONS (2)
  - SEPTIC ARTHRITIS STAPHYLOCOCCAL [None]
  - ABSCESS [None]
